FAERS Safety Report 5849259-4 (Version None)
Quarter: 2008Q3

REPORT INFORMATION
  Report Type: 
  Country: None (occurrence: None)
  Receive Date: 20080819
  Receipt Date: 20080723
  Transmission Date: 20090109
  Serious: Yes (Hospitalization)
  Sender: FDA-Public Use
  Company Number: US-AVENTIS-200816486GDDC

PATIENT
  Age: 56 Year
  Sex: Male
  Weight: 93.5 kg

DRUGS (9)
  1. LANTUS [Suspect]
     Route: 058
     Dates: start: 20070816
  2. APIDRA [Suspect]
     Dates: start: 20070816
  3. METFORMIN HCL [Suspect]
     Route: 048
     Dates: start: 20070219
  4. ACTOS [Suspect]
     Route: 048
     Dates: start: 20070219
  5. VALIUM [Concomitant]
     Indication: BACK PAIN
     Route: 048
     Dates: start: 20080322
  6. OXYCODONE HCL [Concomitant]
     Indication: BACK PAIN
     Route: 048
     Dates: start: 20080522
  7. ASPIRIN [Concomitant]
     Route: 048
     Dates: start: 20070101
  8. PREVACID [Concomitant]
     Route: 048
     Dates: start: 20070101
  9. FLEXERIL [Concomitant]
     Indication: BACK PAIN
     Route: 048
     Dates: start: 20080703

REACTIONS (1)
  - HYPERTENSION [None]
